FAERS Safety Report 7682712-X (Version None)
Quarter: 2011Q3

REPORT INFORMATION
  Report Type: 
  Country: None (occurrence: None)
  Receive Date: 20110815
  Receipt Date: 20110805
  Transmission Date: 20111222
  Serious: Yes (Other)
  Sender: FDA-Public Use
  Company Number: CA-JNJFOC-20110803450

PATIENT
  Age: 46 Year
  Sex: Female

DRUGS (1)
  1. ORTHO EVRA [Suspect]
     Indication: HORMONE REPLACEMENT THERAPY
     Dosage: 1/3 PATCH EVERY 2 DAYS
     Route: 062
     Dates: start: 20010101

REACTIONS (7)
  - WRONG TECHNIQUE IN DRUG USAGE PROCESS [None]
  - PRODUCT QUALITY ISSUE [None]
  - DRY SKIN [None]
  - HORMONE LEVEL ABNORMAL [None]
  - ONYCHOCLASIS [None]
  - OFF LABEL USE [None]
  - WEIGHT INCREASED [None]
